FAERS Safety Report 13504987 (Version 2)
Quarter: 2017Q2

REPORT INFORMATION
  Report Type: Spontaneous
  Country: DE (occurrence: DE)
  Receive Date: 20170502
  Receipt Date: 20170630
  Transmission Date: 20170830
  Serious: Yes (Death, Hospitalization, Other)
  Sender: FDA-Public Use
  Company Number: DE-ABBVIE-17K-062-1961105-00

PATIENT
  Age: 40 Year
  Sex: Male
  Weight: 61 kg

DRUGS (8)
  1. CLONT [Concomitant]
     Indication: PRODUCT USED FOR UNKNOWN INDICATION
     Route: 048
     Dates: start: 20170425, end: 20170427
  2. DEKRISTOL [Concomitant]
     Active Substance: CHOLECALCIFEROL
     Indication: PRODUCT USED FOR UNKNOWN INDICATION
     Route: 048
     Dates: start: 20170424, end: 20170427
  3. PREDNISOLON [Concomitant]
     Active Substance: PREDNISOLONE
     Indication: PRODUCT USED FOR UNKNOWN INDICATION
     Route: 048
     Dates: start: 20170418, end: 20170427
  4. FERINJECT [Concomitant]
     Active Substance: FERRIC CARBOXYMALTOSE
     Indication: PRODUCT USED FOR UNKNOWN INDICATION
     Dosage: INTRAVENOUS
     Dates: start: 20170426, end: 20170427
  5. CIPROBAY [Concomitant]
     Active Substance: CIPROFLOXACIN
     Indication: PRODUCT USED FOR UNKNOWN INDICATION
     Route: 048
     Dates: start: 20170425, end: 20170427
  6. NOVALGIN [Concomitant]
     Active Substance: METAMIZOLE SODIUM
     Indication: PRODUCT USED FOR UNKNOWN INDICATION
     Route: 048
     Dates: start: 20170419, end: 20170427
  7. PANTOZOL [Concomitant]
     Active Substance: PANTOPRAZOLE SODIUM
     Indication: PRODUCT USED FOR UNKNOWN INDICATION
     Dosage: INTRAVENOUS
     Dates: end: 20170427
  8. HUMIRA [Suspect]
     Active Substance: ADALIMUMAB
     Indication: CROHN^S DISEASE
     Route: 058
     Dates: start: 200908, end: 20170314

REACTIONS (47)
  - Ischaemic cardiomyopathy [Unknown]
  - Central nervous system necrosis [Unknown]
  - Pulmonary embolism [Unknown]
  - General physical health deterioration [Unknown]
  - Blood fibrinogen increased [Recovering/Resolving]
  - Renal artery arteriosclerosis [Unknown]
  - Anal skin tags [Unknown]
  - Ulcer [Unknown]
  - Colitis [Unknown]
  - Inflammatory marker increased [Unknown]
  - Vitamin D decreased [Unknown]
  - White blood cell count increased [Recovered/Resolved]
  - Mean cell haemoglobin concentration [Recovered/Resolved]
  - Cardio-respiratory arrest [Fatal]
  - Haematochezia [Unknown]
  - Hypertensive cardiomyopathy [Unknown]
  - Oedema mucosal [Unknown]
  - Drug ineffective [Unknown]
  - Cardiomyopathy [Fatal]
  - Presyncope [Unknown]
  - Enanthema [Unknown]
  - Crohn^s disease [Unknown]
  - Blood iron decreased [Unknown]
  - Platelet count increased [Recovering/Resolving]
  - Haemoglobin decreased [Unknown]
  - Blood albumin decreased [Unknown]
  - Arrhythmia [Fatal]
  - Red blood cell sedimentation rate increased [Unknown]
  - Blood glucose increased [Unknown]
  - Protein total decreased [Unknown]
  - Pulmonary embolism [Fatal]
  - Coronary artery stenosis [Unknown]
  - Hepatitis C [Unknown]
  - Spleen congestion [Unknown]
  - Inflammatory bowel disease [Not Recovered/Not Resolved]
  - Haematocrit decreased [Unknown]
  - Mean cell haemoglobin decreased [Unknown]
  - Red blood cell count decreased [Unknown]
  - Alpha 2 globulin increased [Unknown]
  - Diarrhoea [Unknown]
  - Mucous stools [Unknown]
  - Neuritis [Unknown]
  - Intestinal mucosal hypertrophy [Not Recovered/Not Resolved]
  - Hepatitis C antibody positive [Unknown]
  - Abdominal pain [Not Recovered/Not Resolved]
  - C-reactive protein increased [Recovering/Resolving]
  - Alpha 1 foetoprotein increased [Unknown]

NARRATIVE: CASE EVENT DATE: 201703
